FAERS Safety Report 10442250 (Version 3)
Quarter: 2014Q4

REPORT INFORMATION
  Report Type: Spontaneous
  Country: JP (occurrence: JP)
  Receive Date: 20140909
  Receipt Date: 20141112
  Transmission Date: 20150528
  Serious: Yes (Hospitalization)
  Sender: FDA-Public Use
  Company Number: JP-SA-2014SA120947

PATIENT
  Sex: Male
  Weight: 42.1 kg

DRUGS (18)
  1. CISPLATIN. [Suspect]
     Active Substance: CISPLATIN
     Indication: OESOPHAGEAL CARCINOMA RECURRENT
     Dosage: BIWEEKLY ADMINISTRATION ON DAY 1 AND 8; DOSE- 56.239/DAY
     Route: 042
     Dates: start: 20140124, end: 20140124
  2. TAXOTERE [Suspect]
     Active Substance: DOCETAXEL
     Indication: OESOPHAGEAL CARCINOMA RECURRENT
     Dosage: ADMINISTRATION ON DAY 7; DOSE-49.202/DAY
     Route: 042
     Dates: start: 20131212
  3. NEDAPLATIN [Suspect]
     Active Substance: NEDAPLATIN
     Indication: OESOPHAGEAL CARCINOMA RECURRENT
     Dosage: ADMINISTRATION ON DAY 7
     Route: 065
     Dates: start: 20131221
  4. GIMERACIL\OTERACIL\TEGAFUR [Suspect]
     Active Substance: GIMERACIL\OTERACIL\TEGAFUR
     Indication: OESOPHAGEAL CARCINOMA RECURRENT
     Dosage: ADMINISTRATION ON DAY 1-15, FOLLOWED BY 2 WEEK REST
     Route: 065
     Dates: start: 20140120
  5. APREPITANT. [Concomitant]
     Active Substance: APREPITANT
     Dosage: 125 MG/80 MG, AT THE TIME OF THE FIRST, SECOND, AND THIRD ADMINISTRATION
  6. FLUOROURACIL. [Suspect]
     Active Substance: FLUOROURACIL
     Indication: OESOPHAGEAL CARCINOMA RECURRENT
     Dosage: BIWEEKLY ADMINISTRATION ON DAY 1-5 AND 8-12; DOSE-562.4/DAY
     Route: 042
     Dates: start: 20140207, end: 20140211
  7. TAXOTERE [Suspect]
     Active Substance: DOCETAXEL
     Indication: OESOPHAGEAL CARCINOMA RECURRENT
     Dosage: DAY 7 (DGS THERAPY)
     Route: 042
     Dates: start: 20140120
  8. FLUOROURACIL. [Suspect]
     Active Substance: FLUOROURACIL
     Indication: OESOPHAGEAL CARCINOMA RECURRENT
     Dosage: BIWEEKLY ADMINISTRATION ON DAY 1-5 AND 8-12; DOSE-562.4/DAY
     Route: 042
     Dates: start: 20131212
  9. TAXOTERE [Suspect]
     Active Substance: DOCETAXEL
     Indication: OESOPHAGEAL CARCINOMA RECURRENT
     Dosage: ADMINISTRATION ON DAY 7; DOSE-49.202/DAY
     Route: 042
     Dates: start: 20140207, end: 20140207
  10. DEXAMETHASONE SODIUM PHOSPHATE. [Concomitant]
     Active Substance: DEXAMETHASONE SODIUM PHOSPHATE
     Dosage: 1.5 V, AT THE TIME OF THE FIRST ADMINISTRATION
  11. CISPLATIN. [Suspect]
     Active Substance: CISPLATIN
     Indication: OESOPHAGEAL CARCINOMA RECURRENT
     Dosage: BIWEEKLY ADMINISTRATION ON DAY 1 AND 8; DOSE- 56.239/DAY
     Route: 042
     Dates: start: 20140207, end: 20140207
  12. FLUOROURACIL. [Suspect]
     Active Substance: FLUOROURACIL
     Indication: OESOPHAGEAL CARCINOMA RECURRENT
     Dosage: BIWEEKLY ADMINISTRATION ON DAY 1-5 AND 8-12; DOSE-562.4/DAY
     Route: 042
     Dates: start: 20140124, end: 20140128
  13. NEDAPLATIN [Suspect]
     Active Substance: NEDAPLATIN
     Indication: OESOPHAGEAL CARCINOMA RECURRENT
     Dosage: ADMINISTRATION ON DAY 7
     Route: 065
     Dates: start: 20140120
  14. GIMERACIL\OTERACIL\TEGAFUR [Suspect]
     Active Substance: GIMERACIL\OTERACIL\TEGAFUR
     Indication: OESOPHAGEAL CARCINOMA RECURRENT
     Dosage: ADMINISTRATION ON DAY 1-15, FOLLOWED BY 2 WEEK REST
     Route: 065
     Dates: start: 20131221
  15. GRANISETRON [Concomitant]
     Active Substance: GRANISETRON
     Dosage: AT THE TIME OF THE FIRST ADMINISTRATION
  16. TAXOTERE [Suspect]
     Active Substance: DOCETAXEL
     Indication: OESOPHAGEAL CARCINOMA RECURRENT
     Dosage: BIWEEKLY ADMINISTRATION ON DAY 1 AND 8; DOSE-49.202/DAY
     Route: 042
     Dates: start: 20140124, end: 20140124
  17. TAXOTERE [Suspect]
     Active Substance: DOCETAXEL
     Indication: OESOPHAGEAL CARCINOMA RECURRENT
     Dosage: DAY 7 (DGS THERAPY)
     Route: 042
     Dates: start: 20131221
  18. CISPLATIN. [Suspect]
     Active Substance: CISPLATIN
     Indication: OESOPHAGEAL CARCINOMA RECURRENT
     Dosage: BIWEEKLY ADMINISTRATION ON DAY 1 AND 8; DOSE- 56.239/DAY
     Route: 042
     Dates: start: 20131212

REACTIONS (8)
  - Oliguria [Recovered/Resolved]
  - Acute kidney injury [Recovered/Resolved]
  - Oedema [Recovered/Resolved]
  - Pyrexia [Recovered/Resolved]
  - Renal tubular necrosis [Recovered/Resolved]
  - Blood creatinine increased [Recovered/Resolved]
  - Anuria [Recovered/Resolved]
  - Blood urea increased [Recovered/Resolved]

NARRATIVE: CASE EVENT DATE: 20140228
